FAERS Safety Report 4760626-2 (Version None)
Quarter: 2005Q3

REPORT INFORMATION
  Report Type: 
  Country: None (occurrence: None)
  Receive Date: 20050902
  Receipt Date: 20010827
  Transmission Date: 20060218
  Serious: Yes (Hospitalization)
  Sender: FDA-Public Use
  Company Number: 10969673

PATIENT
  Age: 1 Day
  Sex: Male
  Weight: 4 kg

DRUGS (9)
  1. ZERIT [Suspect]
     Indication: HIV INFECTION
     Dosage: -DURING ALL THE PREGNANCY
     Route: 064
  2. ZERIT [Suspect]
     Dosage: -SYRUP
     Dates: start: 20000309, end: 20000420
  3. EPIVIR [Suspect]
     Indication: HIV INFECTION
     Dosage: -DURING ALL THE PREGNANCY
     Route: 064
  4. RETROVIR [Suspect]
     Indication: HIV INFECTION
     Dosage: -INFUSION AT DELIVERY -200 MG/20 ML
     Route: 064
     Dates: start: 20000309, end: 20000309
  5. CRIXIVAN [Suspect]
     Indication: HIV INFECTION
     Dosage: -UNTIL 9TH WEEK OF GASTATION.
     Route: 064
     Dates: start: 20000817
  6. VIRACEPT [Suspect]
     Indication: HIV INFECTION
     Dosage: -FROM 9TH WEEK OF GESTATION.
     Route: 064
  7. VITAMINS [Concomitant]
  8. SPASFON [Concomitant]
  9. MAGNESIUM + VITAMIN B6 [Concomitant]

REACTIONS (10)
  - ANAEMIA MACROCYTIC [None]
  - BLOOD LACTIC ACID INCREASED [None]
  - CAESAREAN SECTION [None]
  - DRUG EXPOSURE DURING PREGNANCY [None]
  - HYPERTRIGLYCERIDAEMIA [None]
  - NEONATAL DISORDER [None]
  - NEUTROPENIA [None]
  - PREGNANCY [None]
  - REGURGITATION OF FOOD [None]
  - THROMBOCYTHAEMIA [None]
